FAERS Safety Report 16982671 (Version 4)
Quarter: 2020Q1

REPORT INFORMATION
  Report Type: Spontaneous
  Country: JP (occurrence: JP)
  Receive Date: 20191101
  Receipt Date: 20200214
  Transmission Date: 20200409
  Serious: Yes (Death, Hospitalization)
  Sender: FDA-Public Use
  Company Number: JP-ELI_LILLY_AND_COMPANY-JP201910016106

PATIENT
  Age: 76 Year
  Sex: Female
  Weight: 56 kg

DRUGS (11)
  1. OLUMIANT [Suspect]
     Active Substance: BARICITINIB
     Indication: RHEUMATOID VASCULITIS
     Dosage: 4 MG, DAILY
     Route: 048
     Dates: start: 20190205, end: 20190506
  2. CRESTOR [Concomitant]
     Active Substance: ROSUVASTATIN CALCIUM
     Indication: HYPERCHOLESTEROLAEMIA
  3. HOKUNALIN [TULOBUTEROL] [Concomitant]
     Active Substance: TULOBUTEROL
     Indication: ASTHMA
  4. BONVIVA [Concomitant]
     Active Substance: IBANDRONATE SODIUM
     Indication: OSTEOPOROSIS
  5. OLUMIANT [Suspect]
     Active Substance: BARICITINIB
     Dosage: 2 MG, DAILY
     Route: 048
     Dates: start: 20190611
  6. TACROLIMUS. [Concomitant]
     Active Substance: TACROLIMUS
     Indication: RHEUMATOID VASCULITIS
     Dosage: 1 MG, DAILY
     Dates: start: 20190122
  7. PREDNISOLONE. [Concomitant]
     Active Substance: PREDNISOLONE
     Indication: RHEUMATOID VASCULITIS
     Dosage: 2.5 MG, DAILY
     Dates: start: 20190122, end: 20190624
  8. OLUMIANT [Suspect]
     Active Substance: BARICITINIB
     Dosage: 4 MG, DAILY
     Route: 048
     Dates: start: 20190529, end: 20190610
  9. PREDNISOLONE. [Concomitant]
     Active Substance: PREDNISOLONE
     Dosage: 2 MG, DAILY
     Dates: start: 20190625
  10. SINGULAIR [Concomitant]
     Active Substance: MONTELUKAST SODIUM
     Indication: ASTHMA
  11. ALFACALCIDOL [Concomitant]
     Active Substance: ALFACALCIDOL
     Indication: OSTEOPOROSIS

REACTIONS (3)
  - Interstitial lung disease [Fatal]
  - Off label use [Unknown]
  - Pneumonia bacterial [Unknown]

NARRATIVE: CASE EVENT DATE: 201909
